FAERS Safety Report 5130276-7 (Version None)
Quarter: 2006Q4

REPORT INFORMATION
  Report Type: 
  Country: None (occurrence: None)
  Receive Date: 20061018
  Receipt Date: 20061018
  Transmission Date: 20070319
  Serious: Yes (Hospitalization)
  Sender: FDA-Public Use
  Company Number: None

PATIENT
  Age: 83 Year
  Sex: Male
  Weight: 110.6777 kg

DRUGS (9)
  1. WARFARIN SODIUM [Suspect]
     Indication: ATRIAL FIBRILLATION
     Dosage: DAILY PO
     Route: 048
     Dates: start: 20060607, end: 20061017
  2. WARFARIN SODIUM [Suspect]
     Indication: DEEP VEIN THROMBOSIS
     Dosage: DAILY PO
     Route: 048
     Dates: start: 20060607, end: 20061017
  3. WARFARIN SODIUM [Suspect]
     Indication: DISEASE RECURRENCE
     Dosage: DAILY PO
     Route: 048
     Dates: start: 20060607, end: 20061017
  4. DILTIAZEM HCL [Concomitant]
  5. FUROSEMIDE [Concomitant]
  6. LEVALBUTEROL HCL [Concomitant]
  7. METOPROLOL [Concomitant]
  8. OMEPRAZOLE [Concomitant]
  9. PRIMIDONE [Concomitant]

REACTIONS (5)
  - DRUG TOXICITY [None]
  - INAPPROPRIATE SCHEDULE OF DRUG ADMINISTRATION [None]
  - INCORRECT DOSE ADMINISTERED [None]
  - INTERNATIONAL NORMALISED RATIO INCREASED [None]
  - LABORATORY TEST ABNORMAL [None]
